FAERS Safety Report 9004791 (Version 1)
Quarter: 2013Q1

REPORT INFORMATION
  Report Type: Spontaneous
  Country: US (occurrence: None)
  Receive Date: 20130107
  Receipt Date: 20130107
  Transmission Date: 20140127
  Serious: Yes (Hospitalization)
  Sender: FDA-Public Use
  Company Number: None

PATIENT
  Age: 71 Year
  Sex: Female
  Weight: 52.6 kg

DRUGS (1)
  1. VANCOMYCIN, 1 GRAM, HOSPIRAL [Suspect]
     Dosage: 6 UNITS EVERY 24 HOURS IV BOLUS
     Route: 040
     Dates: start: 20120926, end: 20121001

REACTIONS (2)
  - Rash generalised [None]
  - Lymphadenopathy [None]
